FAERS Safety Report 5957553-1 (Version None)
Quarter: 2008Q4

REPORT INFORMATION
  Report Type: 
  Country: None (occurrence: None)
  Receive Date: 20081117
  Receipt Date: 20081117
  Transmission Date: 20090506
  Serious: Yes (Hospitalization)
  Sender: FDA-Public Use
  Company Number: None

PATIENT
  Sex: Female
  Weight: 89 kg

DRUGS (2)
  1. CARBOPLATIN [Suspect]
     Dosage: 471 MG
  2. TAXOL [Suspect]
     Dosage: 231 MG

REACTIONS (2)
  - HAEMOGLOBIN DECREASED [None]
  - HAEMOPTYSIS [None]
